FAERS Safety Report 4777354-X (Version None)
Quarter: 2005Q3

REPORT INFORMATION
  Report Type: 
  Country: None (occurrence: None)
  Receive Date: 20050915
  Receipt Date: 20050907
  Transmission Date: 20060218
  Serious: Yes (Other)
  Sender: FDA-Public Use
  Company Number: 2005119858

PATIENT
  Age: 50 Year
  Sex: Male
  Weight: 88.4514 kg

DRUGS (9)
  1. XANAX [Suspect]
     Indication: ANXIETY
     Dosage: 0.75 MG (0.25 MG, 3 IN 1 D), ORAL
     Route: 048
     Dates: start: 20010101, end: 20020601
  2. AMBIEN [Suspect]
     Indication: ILL-DEFINED DISORDER
     Dosage: 2 IN 1 D
     Dates: start: 20020518, end: 20020614
  3. LIPITOR [Concomitant]
  4. PRILOSEC [Concomitant]
  5. NEXIUM [Concomitant]
  6. VERAPAMIL [Concomitant]
  7. ASPIRIN [Concomitant]
  8. CALAN [Concomitant]
  9. ZOLOFT [Concomitant]

REACTIONS (15)
  - BLINDNESS [None]
  - CEREBROVASCULAR ACCIDENT [None]
  - CONVULSION [None]
  - DRUG DISPENSING ERROR [None]
  - DRUG INEFFECTIVE [None]
  - DRUG WITHDRAWAL SYNDROME [None]
  - HYPOAESTHESIA [None]
  - NAUSEA [None]
  - RESTLESS LEGS SYNDROME [None]
  - SLEEP APNOEA SYNDROME [None]
  - SOMNOLENCE [None]
  - TRANSIENT ISCHAEMIC ATTACK [None]
  - UTERINE PROLAPSE [None]
  - VERTIGO [None]
  - WRONG DRUG ADMINISTERED [None]
